FAERS Safety Report 6834583-9 (Version None)
Quarter: 2010Q3

REPORT INFORMATION
  Report Type: 
  Country: None (occurrence: None)
  Receive Date: 20100712
  Receipt Date: 20070417
  Transmission Date: 20110219
  Serious: Yes (Other)
  Sender: FDA-Public Use
  Company Number: US-PFIZER INC-2007031612

PATIENT
  Sex: Female
  Weight: 74.8 kg

DRUGS (6)
  1. CHANTIX [Suspect]
     Indication: EX-TOBACCO USER
     Dates: start: 20070101
  2. NEXIUM [Concomitant]
  3. CYMBALTA [Concomitant]
  4. KLONOPIN [Concomitant]
  5. VITAMINS [Concomitant]
  6. DRUG, UNSPECIFIED [Concomitant]

REACTIONS (2)
  - BLOOD PRESSURE INCREASED [None]
  - HEART RATE INCREASED [None]
